FAERS Safety Report 17800207 (Version 1)
Quarter: 2020Q2

REPORT INFORMATION
  Report Type: Spontaneous
  Country: BR (occurrence: BR)
  Receive Date: 20200518
  Receipt Date: 20200518
  Transmission Date: 20200714
  Serious: Yes (Other)
  Sender: FDA-Public Use
  Company Number: BR-009507513-2005BRA005154

PATIENT
  Sex: Female
  Weight: 90 kg

DRUGS (2)
  1. NUVARING [Suspect]
     Active Substance: ETHINYL ESTRADIOL\ETONOGESTREL
     Dosage: 1 RING, FOR THREE WEEKS AND SEVEN DAYS OF PAUSE
     Route: 067
     Dates: start: 202004
  2. NUVARING [Suspect]
     Active Substance: ETHINYL ESTRADIOL\ETONOGESTREL
     Indication: CONTRACEPTION
     Dosage: 1 VAGINAL RING
     Route: 067

REACTIONS (4)
  - Caesarean section [Unknown]
  - Pregnancy with contraceptive device [Recovered/Resolved]
  - Product storage error [Unknown]
  - Unintended pregnancy [Recovered/Resolved]
